FAERS Safety Report 9087540 (Version 1)
Quarter: 2013Q1

REPORT INFORMATION
  Report Type: Spontaneous
  Country: US (occurrence: US)
  Receive Date: 20130201
  Receipt Date: 20130201
  Transmission Date: 20140127
  Serious: No
  Sender: FDA-Public Use
  Company Number: US-GALDERMA-US-GDP-12415284

PATIENT
  Age: 12 Year
  Sex: Female
  Weight: 46 kg

DRUGS (5)
  1. EPIDUO [Suspect]
     Indication: ACNE
     Route: 061
     Dates: start: 201209
  2. CETAPHIL [Suspect]
     Indication: THERAPEUTIC SKIN CARE TOPICAL
     Route: 061
     Dates: start: 201209, end: 20121004
  3. CETAPHIL DAILY FACIAL MOISTURIZER SPF 50 [Suspect]
     Indication: THERAPEUTIC SKIN CARE TOPICAL
     Dosage: UNKNOWN
     Route: 061
     Dates: start: 201209, end: 20121004
  4. CETAPHIL [Concomitant]
     Indication: THERAPEUTIC SKIN CARE TOPICAL
     Route: 061
     Dates: start: 20121004
  5. NEUTROGENA MEN SENSITIVE SKIN MOISTURE SPF 30 [Concomitant]
     Indication: THERAPEUTIC SKIN CARE TOPICAL
     Route: 061
     Dates: start: 20121005

REACTIONS (5)
  - Swelling face [Not Recovered/Not Resolved]
  - Erythema [Not Recovered/Not Resolved]
  - Dry skin [Not Recovered/Not Resolved]
  - Skin exfoliation [Not Recovered/Not Resolved]
  - Skin burning sensation [Not Recovered/Not Resolved]
